FAERS Safety Report 20416516 (Version 1)
Quarter: 2022Q1

REPORT INFORMATION
  Report Type: Spontaneous
  Country: US (occurrence: None)
  Receive Date: 20220201
  Receipt Date: 20220201
  Transmission Date: 20220423
  Serious: No
  Sender: FDA-Public Use
  Company Number: None

PATIENT
  Sex: Female

DRUGS (6)
  1. IBRANCE [Suspect]
     Active Substance: PALBOCICLIB
     Indication: Breast cancer
     Dosage: FREQUENCY : DAILY;?
     Route: 048
  2. ANASTROZOLE [Concomitant]
     Active Substance: ANASTROZOLE
  3. LIPITOR [Concomitant]
     Active Substance: ATORVASTATIN CALCIUM
  4. LOSARTAN [Concomitant]
     Active Substance: LOSARTAN
  5. MYRBETRIQ [Concomitant]
     Active Substance: MIRABEGRON
  6. NOVOLOG [Concomitant]
     Active Substance: INSULIN ASPART

REACTIONS (1)
  - Disease progression [None]
